FAERS Safety Report 9298996 (Version 2)
Quarter: 2014Q2

REPORT INFORMATION
  Report Type: Spontaneous
  Country: US (occurrence: US)
  Receive Date: 20130520
  Receipt Date: 20140516
  Transmission Date: 20141212
  Serious: No
  Sender: FDA-Public Use
  Company Number: US-SANOFI-AVENTIS-2013SA039495

PATIENT
  Age: 47 Year
  Sex: Female

DRUGS (2)
  1. SOLOSTAR [Suspect]
     Indication: TYPE 2 DIABETES MELLITUS
     Dosage: PRODUCT START DATE: 1 YEAR
  2. APIDRA SOLOSTAR [Suspect]
     Indication: TYPE 2 DIABETES MELLITUS
     Dosage: START DATE: 1 YEAR,   DOSE: 22/22/28 UNITS   WITH MEALS
     Route: 051

REACTIONS (1)
  - Injection site haemorrhage [Recovered/Resolved]
